FAERS Safety Report 6153346-3 (Version None)
Quarter: 2009Q2

REPORT INFORMATION
  Report Type: 
  Country: None (occurrence: None)
  Receive Date: 20090409
  Receipt Date: 20090409
  Transmission Date: 20091009
  Serious: No
  Sender: FDA-Public Use
  Company Number: None

PATIENT
  Sex: Female
  Weight: 68.0396 kg

DRUGS (3)
  1. RISPERIDONE [Suspect]
     Indication: DRUG INEFFECTIVE
     Dosage: 3 1/2 TABS QD PO
     Route: 048
  2. ADDERALL 10 [Concomitant]
  3. CLONIDINE [Concomitant]

REACTIONS (2)
  - MOOD ALTERED [None]
  - PRODUCT QUALITY ISSUE [None]
